FAERS Safety Report 20421950 (Version 1)
Quarter: 2022Q1

REPORT INFORMATION
  Report Type: Spontaneous
  Country: US (occurrence: None)
  Receive Date: 20220203
  Receipt Date: 20220203
  Transmission Date: 20220424
  Serious: No
  Sender: FDA-Public Use
  Company Number: None

PATIENT
  Age: 27 Year
  Sex: Female
  Weight: 67.5 kg

DRUGS (10)
  1. FLIBANSERIN [Suspect]
     Active Substance: FLIBANSERIN
     Indication: Female sexual dysfunction
     Dosage: FREQUENCY : AT BEDTIME;?
     Route: 048
     Dates: start: 20220119
  2. ADDYI [Concomitant]
     Active Substance: FLIBANSERIN
  3. OMEGA 3 [Concomitant]
     Active Substance: CAPSAICIN
  4. VITAMIN B COMPLEX [Concomitant]
     Active Substance: CYANOCOBALAMIN\DEXPANTHENOL\NIACINAMIDE\PYRIDOXINE HYDROCHLORIDE\RIBOFLAVIN 5^-PHOSPHATE SODIUM\THIA
  5. HERBALS [Concomitant]
     Active Substance: HERBALS
  6. d3 + k [Concomitant]
  7. CRANBERRY [Concomitant]
     Active Substance: CRANBERRY
  8. CERAMIDES [Concomitant]
  9. EVENING PRINROSE [Concomitant]
  10. IRON [Concomitant]
     Active Substance: IRON

REACTIONS (5)
  - Nightmare [None]
  - Anxiety [None]
  - Mental disorder [None]
  - Abnormal dreams [None]
  - Flashback [None]
